FAERS Safety Report 5065528-2 (Version None)
Quarter: 2006Q3

REPORT INFORMATION
  Report Type: 
  Country: None (occurrence: None)
  Receive Date: 20060731
  Receipt Date: 20060727
  Transmission Date: 20061208
  Serious: Yes (Disabling)
  Sender: FDA-Public Use
  Company Number: US-GLAXOSMITHKLINE-A0613796A

PATIENT
  Age: 30 Year
  Sex: Female

DRUGS (1)
  1. LAMICTAL [Suspect]
     Indication: BIPOLAR DISORDER
     Dosage: 100MG TWICE PER DAY
     Route: 048
     Dates: start: 20060608

REACTIONS (31)
  - ACNE [None]
  - ACTIVITIES OF DAILY LIVING IMPAIRED [None]
  - ASTHENIA [None]
  - BACK PAIN [None]
  - CONSTIPATION [None]
  - COORDINATION ABNORMAL [None]
  - DIZZINESS [None]
  - DRY MOUTH [None]
  - EATING DISORDER [None]
  - EYE SWELLING [None]
  - GLAUCOMA [None]
  - HEPATOCELLULAR DAMAGE [None]
  - HYPERAESTHESIA [None]
  - IMPAIRED WORK ABILITY [None]
  - LOCAL SWELLING [None]
  - MIGRAINE [None]
  - NAUSEA [None]
  - OCULAR HYPERAEMIA [None]
  - OEDEMA PERIPHERAL [None]
  - PAIN [None]
  - PRURITUS [None]
  - PYREXIA [None]
  - RASH [None]
  - RHEUMATOID ARTHRITIS [None]
  - SKIN BURNING SENSATION [None]
  - SKIN DISCOLOURATION [None]
  - SKIN EXFOLIATION [None]
  - TINNITUS [None]
  - VISION BLURRED [None]
  - VOMITING [None]
  - WHITE BLOOD CELL COUNT DECREASED [None]
